FAERS Safety Report 17208054 (Version 3)
Quarter: 2020Q1

REPORT INFORMATION
  Report Type: Spontaneous
  Country: JP (occurrence: JP)
  Receive Date: 20191227
  Receipt Date: 20200320
  Transmission Date: 20200409
  Serious: Yes (Other)
  Sender: FDA-Public Use
  Company Number: JP-JNJFOC-20191240627

PATIENT
  Age: 69 Year
  Sex: Male
  Weight: 57 kg

DRUGS (6)
  1. NORVASC [Concomitant]
     Active Substance: AMLODIPINE BESYLATE
     Indication: HYPERTENSION
     Route: 048
     Dates: start: 2000
  2. STAYBLA [Concomitant]
     Active Substance: IMIDAFENACIN
     Indication: HYPERTENSION
     Route: 048
     Dates: start: 2000
  3. ANPLAG [Concomitant]
     Active Substance: SARPOGRELATE
     Indication: THROMBOANGIITIS OBLITERANS
     Route: 048
     Dates: start: 200812
  4. DORNER [Concomitant]
     Active Substance: BERAPROST SODIUM
     Indication: THROMBOANGIITIS OBLITERANS
     Route: 048
     Dates: start: 200812
  5. MECOBALAMIN [Concomitant]
     Active Substance: METHYLCOBALAMIN
     Indication: THROMBOANGIITIS OBLITERANS
     Route: 048
  6. TREMFYA [Suspect]
     Active Substance: GUSELKUMAB
     Indication: PSORIATIC ARTHROPATHY
     Route: 058
     Dates: start: 20180605, end: 2019

REACTIONS (1)
  - Spinocerebellar ataxia [Not Recovered/Not Resolved]

NARRATIVE: CASE EVENT DATE: 201901
